FAERS Safety Report 16766511 (Version 1)
Quarter: 2019Q4

REPORT INFORMATION
  Report Type: Spontaneous
  Country: US (occurrence: US)
  Receive Date: 20190830
  Receipt Date: 20190830
  Transmission Date: 20200122
  Serious: Yes (Other)
  Sender: FDA-Public Use
  Company Number: None

PATIENT
  Age: 57 Year
  Sex: Male
  Weight: 68.9 kg

DRUGS (1)
  1. CEFEPIME [Suspect]
     Active Substance: CEFEPIME HYDROCHLORIDE
     Indication: BACTERAEMIA
     Route: 040
     Dates: start: 20190824, end: 20190827

REACTIONS (4)
  - Dialysis [None]
  - Clonus [None]
  - Confusional state [None]
  - Mental status changes [None]

NARRATIVE: CASE EVENT DATE: 20190824
